FAERS Safety Report 19674252 (Version 1)
Quarter: 2021Q3

REPORT INFORMATION
  Report Type: Spontaneous
  Country: US (occurrence: US)
  Receive Date: 20210809
  Receipt Date: 20210809
  Transmission Date: 20211014
  Serious: No
  Sender: FDA-Public Use
  Company Number: US-JNJFOC-20210763105

PATIENT
  Age: 65 Year
  Sex: Female

DRUGS (1)
  1. MENS ROGAINE EXTRA STRENGTH [Suspect]
     Active Substance: MINOXIDIL
     Indication: ALOPECIA
     Dosage: PROBABLY SPRAYED A LITTLE BIT IN SPOTS ON SCALP AND RUBBED IT IN PRETTY GOOD.
     Route: 061
     Dates: start: 20210719

REACTIONS (10)
  - Tremor [Recovered/Resolved]
  - Headache [Recovered/Resolved]
  - Heart rate increased [Recovered/Resolved]
  - Hypertension [Recovered/Resolved]
  - Erythema [Recovering/Resolving]
  - Off label use [Unknown]
  - Product use issue [Unknown]
  - Anxiety [Recovered/Resolved]
  - Asthenopia [Recovering/Resolving]
  - Incorrect product administration duration [Unknown]

NARRATIVE: CASE EVENT DATE: 20210719
